FAERS Safety Report 6997409-9 (Version None)
Quarter: 2010Q3

REPORT INFORMATION
  Report Type: 
  Country: None (occurrence: None)
  Receive Date: 20100918
  Receipt Date: 20091013
  Transmission Date: 20110219
  Serious: Yes (Other)
  Sender: FDA-Public Use
  Company Number: US-WYE-H11591109

PATIENT
  Sex: Male

DRUGS (1)
  1. PRISTIQ [Suspect]
     Route: 048
     Dates: start: 20090915, end: 20090101

REACTIONS (1)
  - CONVULSION [None]
